FAERS Safety Report 8309146-9 (Version None)
Quarter: 2012Q2

REPORT INFORMATION
  Report Type: 
  Country: None (occurrence: None)
  Receive Date: 20120424
  Receipt Date: 20120419
  Transmission Date: 20120825
  Serious: Yes (Hospitalization)
  Sender: FDA-Public Use
  Company Number: US-GILEAD-2012-0053902

PATIENT
  Age: 61 Year
  Sex: Male

DRUGS (7)
  1. REVATIO [Suspect]
  2. LETAIRIS [Suspect]
     Indication: LEFT VENTRICULAR FAILURE
  3. TYVASO [Suspect]
     Dosage: 216 UNK, UNK
     Dates: start: 20100402
  4. PLAVIX [Concomitant]
  5. LETAIRIS [Suspect]
     Indication: CHRONIC OBSTRUCTIVE PULMONARY DISEASE
  6. LETAIRIS [Suspect]
     Indication: PULMONARY ARTERIAL HYPERTENSION
     Dosage: 10 MG, UNK
     Dates: start: 20080421
  7. LETAIRIS [Suspect]
     Indication: SLEEP APNOEA SYNDROME

REACTIONS (1)
  - DYSPNOEA [None]
